FAERS Safety Report 8858120 (Version 1)
Quarter: 2012Q4

REPORT INFORMATION
  Report Type: 
  Country: US (occurrence: US)
  Receive Date: 20121024
  Receipt Date: 20121024
  Transmission Date: 20130627
  Serious: No
  Sender: FDA-Public Use
  Company Number: US-AMGEN-USASP2011065027

PATIENT
  Age: 56 Year
  Sex: Female
  Weight: 95.24 kg

DRUGS (1)
  1. ENBREL [Suspect]
     Indication: PSORIATIC ARTHROPATHY
     Dosage: 50 mg, qwk
     Dates: start: 20061206

REACTIONS (3)
  - Renal function test abnormal [Unknown]
  - Kidney infection [Unknown]
  - Sinusitis [Unknown]
